FAERS Safety Report 5158179-2 (Version None)
Quarter: 2006Q4

REPORT INFORMATION
  Report Type: 
  Country: None (occurrence: None)
  Receive Date: 20061120
  Receipt Date: 20061120
  Transmission Date: 20070319
  Serious: Yes (Hospitalization)
  Sender: FDA-Public Use
  Company Number: None

PATIENT
  Age: 68 Year
  Sex: Male
  Weight: 53 kg

DRUGS (2)
  1. VYTORIN [Suspect]
     Indication: CEREBROVASCULAR ACCIDENT PROPHYLAXIS
     Dosage: 10MG/80MG DAILY @ BEDTIME NG TUBE
     Dates: start: 20060927, end: 20061015
  2. VYTORIN [Suspect]
     Indication: HYPERLIPIDAEMIA
     Dosage: 10MG/80MG DAILY @ BEDTIME NG TUBE
     Dates: start: 20060927, end: 20061015

REACTIONS (1)
  - MYOSITIS [None]
